FAERS Safety Report 23031572 (Version 2)
Quarter: 2023Q4

REPORT INFORMATION
  Report Type: Spontaneous
  Country: ES (occurrence: ES)
  Receive Date: 20231005
  Receipt Date: 20231118
  Transmission Date: 20240109
  Serious: Yes (Hospitalization, Other)
  Sender: FDA-Public Use
  Company Number: ES-AEMPS-1429494

PATIENT
  Age: 34 Year
  Sex: Female

DRUGS (2)
  1. VALACYCLOVIR [Suspect]
     Active Substance: VALACYCLOVIR HYDROCHLORIDE
     Indication: Herpes zoster
     Dosage: 1 GRAM, 3 TIMES A DAY (1 EVERY 8 HOURS)
     Route: 048
     Dates: start: 20230620, end: 20230626
  2. Nolotil [Concomitant]
     Indication: Product used for unknown indication
     Dosage: 1 EVERY 8 HOURS
     Route: 048
     Dates: start: 20230620, end: 20230626

REACTIONS (2)
  - Hepatocellular injury [Recovering/Resolving]
  - Hyperbilirubinaemia [Recovered/Resolved]

NARRATIVE: CASE EVENT DATE: 20230706
